FAERS Safety Report 9009030 (Version 2)
Quarter: 2013Q1

REPORT INFORMATION
  Report Type: Report from Study
  Country: US (occurrence: US)
  Receive Date: 20130111
  Receipt Date: 20130130
  Transmission Date: 20140127
  Serious: Yes (Other)
  Sender: FDA-Public Use
  Company Number: US-BAYER-2013-003107

PATIENT
  Age: 72 Year
  Sex: Female

DRUGS (3)
  1. STIVARGA [Suspect]
     Indication: COLON CANCER
     Dosage: 160 MG, QD
     Route: 048
     Dates: start: 20121226, end: 20130102
  2. STIVARGA [Suspect]
     Indication: COLON CANCER
     Dosage: 40 MG, 2 TABLETS QD, DAILY
     Route: 048
     Dates: start: 20130110
  3. NEXIUM [Concomitant]
     Dosage: UNK

REACTIONS (6)
  - Fatigue [Recovering/Resolving]
  - Abasia [None]
  - Dehydration [Recovered/Resolved]
  - Diarrhoea [Recovered/Resolved]
  - Vomiting [Recovered/Resolved]
  - Stomatitis [Not Recovered/Not Resolved]
